FAERS Safety Report 5046225-6 (Version None)
Quarter: 2006Q3

REPORT INFORMATION
  Report Type: 
  Country: None (occurrence: None)
  Receive Date: 20060707
  Receipt Date: 20060707
  Transmission Date: 20061208
  Serious: Yes (Hospitalization)
  Sender: FDA-Public Use
  Company Number: None

PATIENT
  Age: 59 Year
  Sex: Male

DRUGS (19)
  1. SPIRONOLACTONE [Suspect]
     Indication: CARDIAC FAILURE
     Dosage: 25 MG PO QD
     Route: 048
     Dates: start: 20060414, end: 20060428
  2. FUROSEMIDE [Suspect]
     Indication: CARDIAC FAILURE
     Dosage: 40MG PO BID
     Route: 048
     Dates: start: 20060414, end: 20060428
  3. TRAZODONE HCL [Concomitant]
  4. SPIRIVA [Concomitant]
  5. ALDACTONE [Concomitant]
  6. ZOCOR [Concomitant]
  7. OMEPRAZOLE [Concomitant]
  8. NITROGLYCERIN [Concomitant]
  9. LISINOPRIL [Concomitant]
  10. ISOSORBIDE DINITRATE [Concomitant]
  11. LASIX [Concomitant]
  12. ZETIA [Concomitant]
  13. DIGOXIN [Concomitant]
  14. PLAVIX [Concomitant]
  15. CARVEDILOL [Concomitant]
  16. ADVAIR DISKUS 100/50 [Concomitant]
  17. ASPIRIN [Concomitant]
  18. PREDNISONE TAPER [Concomitant]
  19. MUCINEX [Concomitant]

REACTIONS (6)
  - BALANCE DISORDER [None]
  - BLOOD PRESSURE ORTHOSTATIC ABNORMAL [None]
  - DIZZINESS [None]
  - HYPOTENSION [None]
  - PARAESTHESIA [None]
  - VISION BLURRED [None]
